FAERS Safety Report 18987877 (Version 2)
Quarter: 2021Q1

REPORT INFORMATION
  Report Type: Spontaneous
  Country: US (occurrence: US)
  Receive Date: 20210309
  Receipt Date: 20210319
  Transmission Date: 20210420
  Serious: Yes (Life-Threatening, Hospitalization)
  Sender: FDA-Public Use
  Company Number: US-ASTRAZENECA-2021A116424

PATIENT
  Age: 723 Month
  Sex: Female

DRUGS (2)
  1. BYDUREON BCISE [Suspect]
     Active Substance: EXENATIDE
     Indication: DIABETES MELLITUS
     Route: 065
  2. NOVOLIN NOS [Concomitant]
     Active Substance: INSULIN HUMAN
     Dosage: TWICE EACH DAY

REACTIONS (5)
  - Drug delivery system malfunction [Unknown]
  - Device leakage [Unknown]
  - COVID-19 [Unknown]
  - Injection site mass [Unknown]
  - Injection site pain [Unknown]

NARRATIVE: CASE EVENT DATE: 202011
